FAERS Safety Report 6943872-9 (Version None)
Quarter: 2010Q3

REPORT INFORMATION
  Report Type: 
  Country: None (occurrence: None)
  Receive Date: 20100826
  Receipt Date: 20100820
  Transmission Date: 20110219
  Serious: Yes (Other)
  Sender: FDA-Public Use
  Company Number: A0877003A

PATIENT
  Age: 57 Year
  Sex: Female

DRUGS (3)
  1. VERAMYST [Suspect]
     Indication: SEASONAL ALLERGY
     Route: 045
     Dates: start: 20080101
  2. MULTIPLE MEDICATIONS [Concomitant]
  3. PLAQUENIL [Concomitant]

REACTIONS (2)
  - EYE DISORDER [None]
  - INTRAOCULAR PRESSURE INCREASED [None]
